FAERS Safety Report 12712313 (Version 2)
Quarter: 2016Q3

REPORT INFORMATION
  Report Type: Spontaneous
  Country: US (occurrence: US)
  Receive Date: 20160902
  Receipt Date: 20160913
  Transmission Date: 20161109
  Serious: No
  Sender: FDA-Public Use
  Company Number: US-BAYER-2016-170453

PATIENT
  Age: 64 Year

DRUGS (1)
  1. NEXAVAR [Suspect]
     Active Substance: SORAFENIB
     Indication: HEPATOCELLULAR CARCINOMA
     Dosage: 200 MG, BID
     Route: 048
     Dates: start: 20160826

REACTIONS (2)
  - Diarrhoea [Not Recovered/Not Resolved]
  - Rash pruritic [None]

NARRATIVE: CASE EVENT DATE: 20160828
